FAERS Safety Report 5845258-7 (Version None)
Quarter: 2008Q3

REPORT INFORMATION
  Report Type: 
  Country: None (occurrence: None)
  Receive Date: 20080814
  Receipt Date: 20080811
  Transmission Date: 20090109
  Serious: Yes (Hospitalization)
  Sender: FDA-Public Use
  Company Number: US-GENENTECH-264006

PATIENT
  Sex: Male
  Weight: 66 kg

DRUGS (12)
  1. EFALIZUMAB [Suspect]
     Indication: RENAL TRANSPLANT
     Dosage: 76 MG, 1/WEEK
     Route: 058
     Dates: start: 20080318, end: 20080624
  2. CELLCEPT [Concomitant]
     Indication: PROPHYLAXIS
     Dosage: UNK
     Dates: start: 20070907
  3. PREDNISONE TAB [Concomitant]
     Indication: PROPHYLAXIS
     Dosage: UNK
     Dates: start: 20070907
  4. PEPCID [Concomitant]
     Indication: DRUG USE FOR UNKNOWN INDICATION
     Dosage: UNK
     Dates: start: 20070910
  5. LOPRESSOR [Concomitant]
     Indication: DRUG USE FOR UNKNOWN INDICATION
     Dosage: UNK
     Dates: start: 20070920
  6. MAG-OX [Concomitant]
     Indication: DRUG USE FOR UNKNOWN INDICATION
     Dosage: UNK
     Dates: start: 20071213
  7. NPH ILETIN II [Concomitant]
     Indication: DRUG USE FOR UNKNOWN INDICATION
     Dosage: UNK
     Dates: start: 20071220
  8. GLYBURIDE [Concomitant]
     Indication: DRUG USE FOR UNKNOWN INDICATION
     Dosage: UNK
     Dates: start: 20071220
  9. PRAVASTATIN [Concomitant]
     Indication: DRUG USE FOR UNKNOWN INDICATION
     Dosage: UNK
     Dates: start: 20080311
  10. VALTREX [Concomitant]
     Indication: DRUG USE FOR UNKNOWN INDICATION
     Dosage: 1000 MG, TID
  11. VALTREX [Concomitant]
     Dosage: 1 G, Q12H
  12. PROGRAF [Concomitant]

REACTIONS (3)
  - ENCEPHALITIS [None]
  - LACUNAR INFARCTION [None]
  - UROSEPSIS [None]
